FAERS Safety Report 5381311-2 (Version None)
Quarter: 2007Q2

REPORT INFORMATION
  Report Type: 
  Country: None (occurrence: None)
  Receive Date: 20070629
  Receipt Date: 20061201
  Transmission Date: 20071010
  Serious: Yes (Hospitalization)
  Sender: FDA-Public Use
  Company Number: VISP-PR-0610S-0699

PATIENT
  Age: 47 Year
  Weight: 9.9791 kg

DRUGS (1)
  1. VISIPAQUE [Suspect]
     Indication: DRUG USE FOR UNKNOWN INDICATION
     Dosage: 75 MEQ, SINGLE DOSE, IV
     Route: 042
     Dates: start: 20060929, end: 20060929

REACTIONS (1)
  - HYPERSENSITIVITY [None]
